FAERS Safety Report 4291956-9 (Version None)
Quarter: 2004Q1

REPORT INFORMATION
  Report Type: 
  Country: None (occurrence: None)
  Receive Date: 20040210
  Receipt Date: 20040210
  Transmission Date: 20041129
  Serious: Yes (Other)
  Sender: FDA-Public Use
  Company Number: None

PATIENT
  Age: 31 Year
  Sex: Female

DRUGS (1)
  1. LEXAPRO [Suspect]
     Indication: ANTIDEPRESSANT THERAPY
     Dosage: 10 MG QD
     Dates: start: 20031119, end: 20031119

REACTIONS (1)
  - RASH PRURITIC [None]
